FAERS Safety Report 19718564 (Version 1)
Quarter: 2021Q3

REPORT INFORMATION
  Report Type: Spontaneous
  Country: US (occurrence: US)
  Receive Date: 20210818
  Receipt Date: 20210818
  Transmission Date: 20211014
  Serious: Yes (Other)
  Sender: FDA-Public Use
  Company Number: US-ALLERGAN-2128478US

PATIENT
  Sex: Male

DRUGS (3)
  1. ESCITALOPRAM OXALATE ? BP [Suspect]
     Active Substance: ESCITALOPRAM OXALATE
     Indication: EXPOSURE DURING PREGNANCY
     Route: 064
  2. SERTRALINE [Suspect]
     Active Substance: SERTRALINE HYDROCHLORIDE
     Indication: EXPOSURE DURING PREGNANCY
     Route: 064
  3. NITROFURANTOIN MONOHYDRATE UNK [Suspect]
     Active Substance: NITROFURANTOIN MONOHYDRATE
     Indication: EXPOSURE DURING PREGNANCY
     Route: 064

REACTIONS (6)
  - Umbilical cord abnormality [Recovered/Resolved]
  - Motor dysfunction [Recovered/Resolved]
  - Pregnancy [Unknown]
  - Cyanosis neonatal [Recovered/Resolved]
  - Neonatal respiratory distress [Recovered/Resolved]
  - Hypoglycaemia neonatal [Recovered/Resolved]
